FAERS Safety Report 5825025-0 (Version None)
Quarter: 2008Q3

REPORT INFORMATION
  Report Type: 
  Country: None (occurrence: None)
  Receive Date: 20080726
  Receipt Date: 20080726
  Transmission Date: 20090109
  Serious: Yes (Other)
  Sender: FDA-Public Use
  Company Number: None

PATIENT
  Age: 29 Year
  Sex: Female
  Weight: 86.1834 kg

DRUGS (3)
  1. BUPROPION HCL [Suspect]
     Indication: ANXIETY
     Dosage: 150MG TABLET TWICE DAILY TAKE 1 2X DAILY PO
     Route: 048
     Dates: start: 20080722, end: 20080726
  2. BUPROPION HCL [Suspect]
     Indication: DEPRESSION
     Dosage: 150MG TABLET TWICE DAILY TAKE 1 2X DAILY PO
     Route: 048
     Dates: start: 20080722, end: 20080726
  3. BUPROPION HCL [Suspect]

REACTIONS (8)
  - CRYING [None]
  - DISORIENTATION [None]
  - FEELING JITTERY [None]
  - INSOMNIA [None]
  - NIGHTMARE [None]
  - PARAESTHESIA [None]
  - PHARMACEUTICAL PRODUCT COMPLAINT [None]
  - THINKING ABNORMAL [None]
